FAERS Safety Report 4485586-3 (Version None)
Quarter: 2004Q4

REPORT INFORMATION
  Report Type: 
  Country: None (occurrence: None)
  Receive Date: 20041026
  Receipt Date: 20040927
  Transmission Date: 20050328
  Serious: Yes (Life-Threatening, Hospitalization, Other)
  Sender: FDA-Public Use
  Company Number: US-MERCK-0409USA02281

PATIENT
  Age: 48 Year
  Sex: Male
  Weight: 48 kg

DRUGS (5)
  1. ZOCOR [Suspect]
     Indication: DYSLIPIDAEMIA
     Route: 048
     Dates: start: 20010101
  2. LOTENSIN [Concomitant]
     Route: 065
  3. TRICOR [Concomitant]
     Indication: DYSLIPIDAEMIA
     Route: 048
  4. LISINOPRIL [Concomitant]
     Indication: HYPERTENSION
     Route: 048
  5. PANCREASE (PANCRELIPASE) [Concomitant]
     Indication: PANCREATITIS
     Route: 048

REACTIONS (4)
  - BILIARY TRACT DISORDER [None]
  - GALLBLADDER DISORDER [None]
  - PANCREATIC DISORDER [None]
  - PANCREATITIS ACUTE [None]
